FAERS Safety Report 20548146 (Version 2)
Quarter: 2022Q1

REPORT INFORMATION
  Report Type: Spontaneous
  Country: US (occurrence: US)
  Receive Date: 20220303
  Receipt Date: 20220309
  Transmission Date: 20220423
  Serious: No
  Sender: FDA-Public Use
  Company Number: US-PFIZER INC-2021680780

PATIENT
  Age: 65 Year
  Sex: Female

DRUGS (1)
  1. INLYTA [Suspect]
     Active Substance: AXITINIB
     Dosage: 5 MG
     Dates: start: 20200401

REACTIONS (5)
  - Diarrhoea [Unknown]
  - Hyperkeratosis [Unknown]
  - Pain in extremity [Unknown]
  - Joint range of motion decreased [Unknown]
  - Skin discolouration [Unknown]
